FAERS Safety Report 18025987 (Version 1)
Quarter: 2020Q3

REPORT INFORMATION
  Report Type: Spontaneous
  Country: CA (occurrence: CA)
  Receive Date: 20200715
  Receipt Date: 20200715
  Transmission Date: 20201103
  Serious: Yes (Death)
  Sender: FDA-Public Use
  Company Number: CA-PFIZER INC-2020151373

PATIENT
  Age: 81 Year
  Sex: Female

DRUGS (2)
  1. IBRANCE [Suspect]
     Active Substance: PALBOCICLIB
     Dosage: UNK
     Dates: start: 20200311
  2. FASLODEX [Concomitant]
     Active Substance: FULVESTRANT
     Dosage: UNK

REACTIONS (3)
  - Death [Fatal]
  - Off label use [Unknown]
  - Product use in unapproved indication [Unknown]
